FAERS Safety Report 21589924 (Version 2)
Quarter: 2022Q4

REPORT INFORMATION
  Report Type: Report from Study
  Country: US (occurrence: US)
  Receive Date: 20221114
  Receipt Date: 20221201
  Transmission Date: 20230112
  Serious: Yes (Hospitalization)
  Sender: FDA-Public Use
  Company Number: US-ABBVIE-4196568

PATIENT
  Age: 75 Year
  Sex: Male

DRUGS (1)
  1. IMBRUVICA [Suspect]
     Active Substance: IBRUTINIB
     Indication: Chronic lymphocytic leukaemia
     Route: 048
     Dates: start: 201909

REACTIONS (7)
  - Hospitalisation [Unknown]
  - Anxiety [Unknown]
  - Poor quality sleep [Unknown]
  - Haematological infection [Not Recovered/Not Resolved]
  - Dyspnoea [Recovered/Resolved]
  - Oxygen saturation decreased [Unknown]
  - Fear [Unknown]

NARRATIVE: CASE EVENT DATE: 20221028
